FAERS Safety Report 14125889 (Version 1)
Quarter: 2017Q4

REPORT INFORMATION
  Report Type: Spontaneous
  Country: US (occurrence: US)
  Receive Date: 20171025
  Receipt Date: 20171025
  Transmission Date: 20180321
  Serious: No
  Sender: FDA-Public Use
  Company Number: US-ST. RENATUS-2017STR00039

PATIENT
  Age: 35 Year
  Sex: Female

DRUGS (3)
  1. KOVANAZE [Suspect]
     Active Substance: OXYMETAZOLINE HYDROCHLORIDE\TETRACAINE HYDROCHLORIDE
     Indication: TOOTH REPAIR
     Dosage: 0.2 ML EVERY 10 MINUTES X 3 DOSES
     Route: 045
     Dates: start: 20170405, end: 20170405
  2. RITALIN [Concomitant]
     Active Substance: METHYLPHENIDATE HYDROCHLORIDE
  3. METFORMIN [Concomitant]
     Active Substance: METFORMIN HYDROCHLORIDE

REACTIONS (2)
  - Drug ineffective [Recovered/Resolved]
  - Nasal discomfort [Unknown]

NARRATIVE: CASE EVENT DATE: 201704
